FAERS Safety Report 6167178-3 (Version None)
Quarter: 2009Q2

REPORT INFORMATION
  Report Type: 
  Country: None (occurrence: None)
  Receive Date: 20090424
  Receipt Date: 20090413
  Transmission Date: 20091009
  Serious: Yes (Hospitalization)
  Sender: FDA-Public Use
  Company Number: GB-PFIZER INC-2009196709

PATIENT

DRUGS (7)
  1. GABAPENTIN [Suspect]
     Indication: ARTHRALGIA
     Dosage: 300 MG, 3X/DAY
  2. AMLODIPINE [Concomitant]
  3. DICLOFENAC [Concomitant]
  4. DIHYDROCODEINE [Concomitant]
  5. FUROSEMIDE [Concomitant]
  6. IRBESARTAN [Concomitant]
  7. TRAMADOL [Concomitant]

REACTIONS (2)
  - DRUG TOXICITY [None]
  - LOSS OF CONSCIOUSNESS [None]
